FAERS Safety Report 25949248 (Version 2)
Quarter: 2025Q4

REPORT INFORMATION
  Report Type: Report from Study
  Country: US (occurrence: US)
  Receive Date: 20251022
  Receipt Date: 20251202
  Transmission Date: 20260117
  Serious: Yes (Hospitalization)
  Sender: ALNYLAM PHARMACEUTICALS
  Company Number: US-ALNYLAM PHARMACEUTICALS, INC.-ALN-2025-006312

PATIENT

DRUGS (1)
  1. GIVLAARI [Suspect]
     Active Substance: GIVOSIRAN SODIUM
     Indication: Porphyria
     Dosage: UNK
     Route: 065

REACTIONS (10)
  - Hospitalisation [Unknown]
  - Injection site rash [Unknown]
  - Injection site pruritus [Unknown]
  - Nausea [Recovering/Resolving]
  - Nasopharyngitis [Not Recovered/Not Resolved]
  - Energy increased [Unknown]
  - Unevaluable event [Unknown]
  - Erythema [Unknown]
  - Adverse drug reaction [Unknown]
  - Fatigue [Unknown]
